FAERS Safety Report 14323399 (Version 1)
Quarter: 2017Q4

REPORT INFORMATION
  Report Type: Spontaneous
  Country: US (occurrence: US)
  Receive Date: 20171226
  Receipt Date: 20171226
  Transmission Date: 20180321
  Serious: No
  Sender: FDA-Public Use
  Company Number: US-CIPLA LTD.-2017US04522

PATIENT

DRUGS (1)
  1. LAMOTRIGINE. [Suspect]
     Active Substance: LAMOTRIGINE
     Indication: EPILEPSY
     Dosage: 800 (UNITS UNSPECIFIED)
     Route: 065
     Dates: start: 20151010, end: 20160709

REACTIONS (2)
  - No adverse event [Unknown]
  - Exposure during pregnancy [Unknown]
